FAERS Safety Report 8358335-6 (Version None)
Quarter: 2012Q2

REPORT INFORMATION
  Report Type: 
  Country: None (occurrence: None)
  Receive Date: 20120514
  Receipt Date: 20110426
  Transmission Date: 20120825
  Serious: No
  Sender: FDA-Public Use
  Company Number: US-ALEXION-A201100612

PATIENT
  Sex: Male

DRUGS (17)
  1. SOLIRIS [Suspect]
     Indication: PAROXYSMAL NOCTURNAL HAEMOGLOBINURIA
     Dosage: 600 MG, QW X 4 WEEKS
     Route: 042
     Dates: start: 20090323
  2. CLARITIN [Concomitant]
     Dosage: UNK
  3. DICLOFENAC SODIUM [Concomitant]
     Dosage: UNK
  4. SIMVASTATIN [Concomitant]
     Dosage: UNK
  5. GABAPENTIN [Concomitant]
     Dosage: UNK
  6. INSULIN [Concomitant]
     Dosage: UNK
  7. LYRICA [Concomitant]
     Dosage: UNK
  8. PRILOSEC [Concomitant]
     Dosage: UNK
  9. CYCLOBENZAPRINE [Concomitant]
     Dosage: UNK
  10. FINASTERIDE [Concomitant]
     Dosage: UNK
  11. AMBIEN [Concomitant]
     Dosage: UNK
  12. COZAAR [Concomitant]
     Dosage: UNK
  13. PAXIL [Concomitant]
     Dosage: UNK
  14. VICODIN [Concomitant]
     Dosage: UNK
  15. COLACE [Concomitant]
     Dosage: UNK
  16. SOLIRIS [Suspect]
     Dosage: 900 MG, Q2W
     Route: 042
  17. FOLIC ACID [Concomitant]
     Dosage: UNK

REACTIONS (3)
  - DIZZINESS [None]
  - NECK PAIN [None]
  - ANXIETY [None]
